FAERS Safety Report 8052251-5 (Version None)
Quarter: 2012Q1

REPORT INFORMATION
  Report Type: 
  Country: None (occurrence: None)
  Receive Date: 20120118
  Receipt Date: 20120111
  Transmission Date: 20120608
  Serious: Yes (Hospitalization)
  Sender: FDA-Public Use
  Company Number: TR-JNJFOC-20120103872

PATIENT
  Age: 25 Year
  Sex: Female

DRUGS (8)
  1. REMICADE [Suspect]
     Dosage: INITIAL DOSES ON WEEK 0, 2 AND 6 WEEKS.  DISCONTINUED AFTER THE THIRD DOSE.
     Route: 042
  2. REMICADE [Suspect]
     Dosage: INITIAL DOSES ON WEEK 0, 2 AND 6 WEEKS.  DISCONTINUED AFTER THE THIRD DOSE.
     Route: 042
  3. REMICADE [Suspect]
     Indication: FEMALE GENITAL TRACT FISTULA
     Route: 042
  4. REMICADE [Suspect]
     Route: 042
  5. REMICADE [Suspect]
     Route: 042
  6. MESALAMINE [Concomitant]
     Route: 065
  7. REMICADE [Suspect]
     Indication: ANAL FISTULA
     Route: 042
  8. AZATHIOPRINE [Suspect]
     Indication: ANAL FISTULA
     Route: 065

REACTIONS (5)
  - DIARRHOEA [None]
  - PYREXIA [None]
  - NEUTROPENIA [None]
  - FATIGUE [None]
  - THROMBOCYTOPENIA [None]
